FAERS Safety Report 7081911-8 (Version None)
Quarter: 2010Q4

REPORT INFORMATION
  Report Type: 
  Country: None (occurrence: None)
  Receive Date: 20101103
  Receipt Date: 20101026
  Transmission Date: 20110411
  Serious: Yes (Other)
  Sender: FDA-Public Use
  Company Number: US-PFIZER INC-2010137039

PATIENT
  Sex: Male
  Weight: 94 kg

DRUGS (4)
  1. XALATAN [Suspect]
     Indication: GLAUCOMA
     Dosage: ONE DROP EACH EYE, 1X/DAY
     Route: 047
  2. HYTRIN [Concomitant]
     Indication: HYPERTENSION
     Dosage: 10 MG, UNK
  3. MAXZIDE [Concomitant]
     Indication: HYPERTENSION
     Dosage: 25 MG, UNK
  4. LABETALOL [Concomitant]
     Indication: HYPERTENSION
     Dosage: 200 MG, UNK

REACTIONS (3)
  - LABORATORY TEST ABNORMAL [None]
  - MOVEMENT DISORDER [None]
  - TREMOR [None]
